FAERS Safety Report 5749201-0 (Version None)
Quarter: 2008Q2

REPORT INFORMATION
  Report Type: 
  Country: None (occurrence: None)
  Receive Date: 20080527
  Receipt Date: 20080514
  Transmission Date: 20081010
  Serious: Yes (Hospitalization, Other)
  Sender: FDA-Public Use
  Company Number: CZ-ROCHE-561707

PATIENT
  Age: 20 Year
  Sex: Male

DRUGS (2)
  1. ROACCUTANE [Suspect]
     Indication: ACNE
     Route: 065
     Dates: end: 20070315
  2. FLUOXETINE HCL [Concomitant]
     Indication: DEPRESSION

REACTIONS (7)
  - ALCOHOL POISONING [None]
  - ARACHNOID CYST [None]
  - CHAPPED LIPS [None]
  - DEPRESSION [None]
  - DRUG TOXICITY [None]
  - DRY SKIN [None]
  - SUICIDE ATTEMPT [None]
